FAERS Safety Report 9065408 (Version 1)
Quarter: 2013Q1

REPORT INFORMATION
  Report Type: Report from Study
  Country: CA (occurrence: CA)
  Receive Date: 20130214
  Receipt Date: 20130214
  Transmission Date: 20140127
  Serious: Yes (Other)
  Sender: FDA-Public Use
  Company Number: CA-JNJFOC-20130203026

PATIENT
  Sex: Male
  Weight: 133 kg

DRUGS (11)
  1. REMICADE [Suspect]
     Indication: CROHN^S DISEASE
     Route: 042
     Dates: start: 200811
  2. IMURAN [Concomitant]
     Route: 065
  3. CIPRALEX [Concomitant]
     Route: 065
  4. SIMVASTATIN [Concomitant]
     Route: 065
  5. NOVASEN [Concomitant]
     Route: 065
  6. ALL OTHER THERAPEUTICS [Concomitant]
     Route: 065
  7. TRAZODONE [Concomitant]
     Route: 065
  8. RABEPRAZOLE [Concomitant]
     Route: 065
  9. RAMIPRIL [Concomitant]
     Route: 065
  10. SALOFALK [Concomitant]
     Route: 065
  11. LYRICA [Concomitant]
     Route: 065

REACTIONS (4)
  - Anaemia [Recovering/Resolving]
  - Akathisia [Recovering/Resolving]
  - Panic attack [Recovering/Resolving]
  - Infusion related reaction [Recovering/Resolving]
